FAERS Safety Report 8221524-5 (Version None)
Quarter: 2012Q1

REPORT INFORMATION
  Report Type: 
  Country: None (occurrence: None)
  Receive Date: 20120320
  Receipt Date: 20120315
  Transmission Date: 20120608
  Serious: Yes (Hospitalization)
  Sender: FDA-Public Use
  Company Number: DE-ABBOTT-12P-062-0915742-00

PATIENT
  Age: 79 Year
  Sex: Female
  Weight: 102 kg

DRUGS (1)
  1. PARICALCITOL [Suspect]
     Indication: HYPERPARATHYROIDISM SECONDARY
     Dates: start: 20100812

REACTIONS (1)
  - PNEUMONIA [None]
